FAERS Safety Report 5814792-8 (Version None)
Quarter: 2008Q3

REPORT INFORMATION
  Report Type: 
  Country: None (occurrence: None)
  Receive Date: 20080715
  Receipt Date: 20080625
  Transmission Date: 20090109
  Serious: Yes (Other)
  Sender: FDA-Public Use
  Company Number: CLOF-1000114

PATIENT
  Age: 30 Year
  Sex: Male

DRUGS (16)
  1. CLOFARABINE (CLOFARABINE) SOLUTION FOR INFUSION [Suspect]
     Indication: ACUTE MYELOID LEUKAEMIA
     Dosage: 65 MG, QDX5, INTRAVENOUS
     Route: 042
     Dates: start: 20080212, end: 20080216
  2. CYCLOPHOSPHAMIDE [Suspect]
     Indication: ACUTE MYELOID LEUKAEMIA
     Dosage: 580 MG, QDX5,
     Dates: start: 20080212, end: 20080216
  3. ETOPOSIDE [Suspect]
     Indication: ACUTE MYELOID LEUKAEMIA
     Dosage: 165 MG/DAY, QDX5,
     Dates: start: 20080212, end: 20080216
  4. ALLOPURINOL [Concomitant]
  5. HEPARIN [Concomitant]
  6. ONDANSETRON HYDROCHLORIDE [Concomitant]
  7. ALIZAPRIDE HYDROCHLORIDE (ALIZAPRIDE HYDROCHLORIDE) [Concomitant]
  8. URSODIOL [Concomitant]
  9. FLUCONAZOLE [Concomitant]
  10. SULFAMETHOXAZOL MED TRIMETHOPRIM (SULFAMETHOXAZOLE, TRIMETHOPRIM) [Concomitant]
  11. ZOLPIDEM TARTRATE [Concomitant]
  12. VALACYCLOVIR [Concomitant]
  13. PHENOXYMETHYLPENICILLIN [Concomitant]
  14. APREPITANT (APREPITANT) [Concomitant]
  15. APREPITANT (APREPITANT) [Concomitant]
  16. FLUCONAZOLE [Concomitant]

REACTIONS (2)
  - CEREBRAL HAEMORRHAGE [None]
  - CYTOLYTIC HEPATITIS [None]
